FAERS Safety Report 20774652 (Version 1)
Quarter: 2022Q2

REPORT INFORMATION
  Report Type: Spontaneous
  Country: US (occurrence: US)
  Receive Date: 20220502
  Receipt Date: 20220502
  Transmission Date: 20220721
  Serious: No
  Sender: FDA-Public Use
  Company Number: US-ABBVIE-22K-163-4242817-00

PATIENT
  Sex: Female
  Weight: 61.290 kg

DRUGS (6)
  1. CREON [Suspect]
     Active Substance: PANCRELIPASE AMYLASE\PANCRELIPASE LIPASE\PANCRELIPASE PROTEASE
     Indication: Pancreatitis
     Dosage: 2-3 WITH MEAL; 1 WITH SNACK
     Route: 048
     Dates: start: 202001
  2. CANDESARTAN [Concomitant]
     Active Substance: CANDESARTAN
     Indication: Cardiac disorder
  3. METOPROLOL [Concomitant]
     Active Substance: METOPROLOL
     Indication: Cardiac disorder
  4. COVID-19 VACCINE [Concomitant]
     Indication: COVID-19 immunisation
     Dosage: MANUF: MODERNA
     Route: 030
     Dates: start: 2021, end: 2021
  5. COVID-19 VACCINE [Concomitant]
     Dosage: MANUF: MODERNA
     Route: 030
     Dates: start: 2021, end: 2021
  6. COVID-19 VACCINE [Concomitant]
     Dosage: MANUF: MODERNA
     Route: 030
     Dates: start: 202110, end: 202110

REACTIONS (3)
  - Weight decreased [Recovering/Resolving]
  - Diarrhoea [Recovering/Resolving]
  - Gastrointestinal disorder [Unknown]
